FAERS Safety Report 10168756 (Version 1)
Quarter: 2014Q2

REPORT INFORMATION
  Report Type: Spontaneous
  Country: US (occurrence: US)
  Receive Date: 20140513
  Receipt Date: 20140513
  Transmission Date: 20141212
  Serious: No
  Sender: FDA-Public Use
  Company Number: US-BAYER-2014-054545

PATIENT
  Age: 73 Year
  Sex: Male

DRUGS (3)
  1. STAXYN (FDT/ODT) [Suspect]
     Indication: ERECTILE DYSFUNCTION
     Dosage: 10 MG, UNK
     Route: 048
  2. STAXYN (FDT/ODT) [Suspect]
     Indication: ERECTILE DYSFUNCTION
     Dosage: UNK
  3. LOSARTAN [Concomitant]

REACTIONS (1)
  - Drug ineffective [Unknown]
